FAERS Safety Report 24846279 (Version 1)
Quarter: 2025Q1

REPORT INFORMATION
  Report Type: Report from Study
  Country: CA (occurrence: CA)
  Receive Date: 20250115
  Receipt Date: 20250115
  Transmission Date: 20250408
  Serious: Yes (Other)
  Sender: SANDOZ
  Company Number: CA-SANDOZ-SDZ2024CA018806

PATIENT
  Sex: Male

DRUGS (1)
  1. HYRIMOZ [Suspect]
     Active Substance: ADALIMUMAB-ADAZ
     Indication: Ankylosing spondylitis
     Dosage: 40MG ONCE WEEKLY
     Route: 058
     Dates: start: 20240127

REACTIONS (3)
  - Ankylosing spondylitis [Unknown]
  - Off label use [Unknown]
  - Product dose omission issue [Unknown]
